FAERS Safety Report 16004044 (Version 2)
Quarter: 2019Q1

REPORT INFORMATION
  Report Type: Spontaneous
  Country: FR (occurrence: FR)
  Receive Date: 20190225
  Receipt Date: 20190225
  Transmission Date: 20190418
  Serious: Yes (Hospitalization)
  Sender: FDA-Public Use
  Company Number: FR-ACCORD-108826

PATIENT
  Age: 70 Year
  Sex: Male

DRUGS (13)
  1. OGASTORO [Concomitant]
     Active Substance: LANSOPRAZOLE
  2. LASILIX [Concomitant]
     Active Substance: FUROSEMIDE
  3. XATRAL [Concomitant]
     Active Substance: ALFUZOSIN
  4. SPECIAFOLDINE [Concomitant]
     Active Substance: FOLIC ACID
  5. GELOPECTOSE [Concomitant]
  6. LOVENOX [Concomitant]
     Active Substance: ENOXAPARIN SODIUM
  7. PARACETAMOL [Concomitant]
     Active Substance: ACETAMINOPHEN
  8. TRAMADOL BASE [Concomitant]
     Active Substance: TRAMADOL
  9. FLUOROURACIL. [Suspect]
     Active Substance: FLUOROURACIL
     Indication: ADENOCARCINOMA OF COLON
     Route: 041
     Dates: start: 20180522, end: 20180522
  10. OXALIPLATIN. [Suspect]
     Active Substance: OXALIPLATIN
     Indication: ADENOCARCINOMA OF COLON
     Route: 041
     Dates: start: 20180522, end: 20180522
  11. IRINOTECAN MEDAC [Suspect]
     Active Substance: IRINOTECAN
     Indication: ADENOCARCINOMA OF COLON
     Route: 041
     Dates: start: 20180522, end: 20180522
  12. GAVISCON [Concomitant]
     Active Substance: ALUMINUM HYDROXIDE\MAGNESIUM CARBONATE
  13. DIFFU K [Concomitant]
     Active Substance: POTASSIUM CHLORIDE

REACTIONS (3)
  - Dehydration [Recovered/Resolved]
  - Hypovolaemic shock [Recovered/Resolved]
  - Diarrhoea [Recovered/Resolved]

NARRATIVE: CASE EVENT DATE: 20180605
